FAERS Safety Report 8203738-3 (Version None)
Quarter: 2012Q1

REPORT INFORMATION
  Report Type: 
  Country: None (occurrence: None)
  Receive Date: 20120308
  Receipt Date: 20120229
  Transmission Date: 20120608
  Serious: Yes (Hospitalization)
  Sender: FDA-Public Use
  Company Number: 2011SP050841

PATIENT
  Age: 35 Year
  Sex: Female
  Weight: 81.1939 kg

DRUGS (1)
  1. NUVARING [Suspect]
     Indication: CONTRACEPTION
     Dates: start: 20090601, end: 20091112

REACTIONS (12)
  - HAEMOPTYSIS [None]
  - MUSCLE SPASMS [None]
  - HAEMATOCHEZIA [None]
  - MENTAL DISORDER [None]
  - PULMONARY EMBOLISM [None]
  - ROAD TRAFFIC ACCIDENT [None]
  - IMPAIRED WORK ABILITY [None]
  - HEADACHE [None]
  - PALPITATIONS [None]
  - BACK INJURY [None]
  - COAGULOPATHY [None]
  - THROMBOSIS [None]
